FAERS Safety Report 7767633-6 (Version None)
Quarter: 2011Q3

REPORT INFORMATION
  Report Type: 
  Country: None (occurrence: None)
  Receive Date: 20110922
  Receipt Date: 20110914
  Transmission Date: 20111222
  Serious: Yes (Death, Hospitalization, Other)
  Sender: FDA-Public Use
  Company Number: JP-AMGEN-JPNCT2011001532

PATIENT
  Age: 80 Year
  Sex: Female
  Weight: 44 kg

DRUGS (13)
  1. AZUNOL ST [Concomitant]
     Route: 049
  2. PANITUMUMAB [Suspect]
     Dosage: 6 MG/KG, Q2WK
     Route: 041
     Dates: start: 20110107, end: 20110325
  3. MAXIPIME [Concomitant]
     Dosage: UNK
     Route: 042
  4. LOPERAMIDE HCL [Concomitant]
     Dosage: UNK
     Route: 048
  5. GRAN [Concomitant]
     Dosage: UNK
     Route: 042
  6. IBRUPROFEN [Concomitant]
     Dosage: 200 MG, QD
     Route: 048
  7. DIOVAN [Concomitant]
     Dosage: 40 MG, QD
     Route: 048
  8. PANITUMUMAB [Suspect]
     Indication: COLORECTAL CANCER
     Dosage: 6 MG/KG, Q2WK
     Route: 041
     Dates: start: 20101004, end: 20101004
  9. IRINOTECAN HCL [Suspect]
     Indication: COLORECTAL CANCER
     Route: 041
     Dates: start: 20101004, end: 20101004
  10. CORTICOSTEROIDS [Concomitant]
     Indication: PROPHYLAXIS
     Dosage: UNK
     Route: 065
  11. PANITUMUMAB [Suspect]
     Dosage: 6 MG/KG, Q2WK
     Dates: start: 20101112, end: 20101210
  12. TS 1 [Suspect]
     Indication: COLORECTAL CANCER
     Dosage: 100 MG, QD
     Route: 048
     Dates: start: 20101004, end: 20101018
  13. LANSOPRAZOLE [Concomitant]
     Dosage: 15 MG, QD
     Route: 048

REACTIONS (8)
  - NEUTROPHIL COUNT DECREASED [None]
  - PARONYCHIA [None]
  - METASTASES TO CENTRAL NERVOUS SYSTEM [None]
  - DERMATITIS ACNEIFORM [None]
  - COLORECTAL CANCER [None]
  - HYPOMAGNESAEMIA [None]
  - DIARRHOEA [None]
  - STOMATITIS [None]
